FAERS Safety Report 6262576-1 (Version None)
Quarter: 2009Q3

REPORT INFORMATION
  Report Type: 
  Country: None (occurrence: None)
  Receive Date: 20090709
  Receipt Date: 20090706
  Transmission Date: 20100115
  Serious: Yes (Death, Hospitalization)
  Sender: FDA-Public Use
  Company Number: AR-ELI_LILLY_AND_COMPANY-AR200906006245

PATIENT
  Age: 81 Year
  Sex: Female

DRUGS (3)
  1. BYETTA [Suspect]
     Indication: TYPE 2 DIABETES MELLITUS
     Dosage: 5 UG, 2/D
     Route: 058
     Dates: start: 20090201
  2. LOTRIAL [Concomitant]
     Indication: HYPERTENSION
     Dosage: UNK, UNKNOWN
     Route: 065
  3. GLUCOSAMINE [Concomitant]
     Indication: OSTEOARTHRITIS
     Dosage: UNK, UNKNOWN
     Route: 065

REACTIONS (5)
  - ASTHENIA [None]
  - CARDIO-RESPIRATORY ARREST [None]
  - FALL [None]
  - HIP FRACTURE [None]
  - VOMITING [None]
